FAERS Safety Report 6237174-6 (Version None)
Quarter: 2009Q2

REPORT INFORMATION
  Report Type: 
  Country: None (occurrence: None)
  Receive Date: 20090619
  Receipt Date: 20090511
  Transmission Date: 20091009
  Serious: No
  Sender: FDA-Public Use
  Company Number: US-ASTRAZENECA-2009UW12171

PATIENT
  Age: 75 Year
  Sex: Male
  Weight: 74.8 kg

DRUGS (19)
  1. SYMBICORT [Suspect]
     Indication: CHRONIC OBSTRUCTIVE PULMONARY DISEASE
     Route: 055
  2. PREDNISONE [Concomitant]
     Indication: RASH
  3. PREDNISONE [Concomitant]
     Indication: PNEUMONIA
  4. BENADRYL [Concomitant]
     Indication: RASH
  5. CARDIZEM [Concomitant]
  6. SINGULAIR [Concomitant]
  7. PROVENTIL-HFA [Concomitant]
  8. SPIRIVA [Concomitant]
  9. ASMANEX TWISTHALER [Concomitant]
  10. OMEPRAZOLE [Concomitant]
     Indication: GASTROOESOPHAGEAL REFLUX DISEASE
     Route: 048
  11. ATORVASTATIN CALCIUM [Concomitant]
  12. PLAVIX [Concomitant]
  13. FISH OIL [Concomitant]
  14. NAPROXEN [Concomitant]
  15. MULTI-VITAMIN [Concomitant]
  16. GLUCOSAMINE/CHONDRITIN [Concomitant]
  17. ZINC [Concomitant]
  18. ASPIRIN [Concomitant]
  19. PRO Q10 [Concomitant]

REACTIONS (8)
  - ANXIETY [None]
  - FATIGUE [None]
  - HEART RATE INCREASED [None]
  - LETHARGY [None]
  - NERVOUSNESS [None]
  - RASH [None]
  - TREMOR [None]
  - URTICARIA [None]
